FAERS Safety Report 7580250-6 (Version None)
Quarter: 2011Q2

REPORT INFORMATION
  Report Type: 
  Country: None (occurrence: None)
  Receive Date: 20110629
  Receipt Date: 20110621
  Transmission Date: 20111010
  Serious: Yes (Disabling)
  Sender: FDA-Public Use
  Company Number: CA-AMGEN-CANSP2011031878

PATIENT
  Age: 51 Year
  Sex: Female
  Weight: 170 kg

DRUGS (2)
  1. SYNTHROID [Concomitant]
     Route: 048
  2. NEUPOGEN [Suspect]
     Indication: PRODUCT USED FOR UNKNOWN INDICATION
     Dosage: 780 A?G, QD

REACTIONS (2)
  - LIMB DISCOMFORT [None]
  - MUSCLE SPASMS [None]
